FAERS Safety Report 9173820 (Version 2)
Quarter: 2013Q2

REPORT INFORMATION
  Report Type: Spontaneous
  Country: DE (occurrence: DE)
  Receive Date: 20130320
  Receipt Date: 20130502
  Transmission Date: 20140414
  Serious: Yes (Other)
  Sender: FDA-Public Use
  Company Number: DE-AMGEN-DEUSP2013018029

PATIENT
  Age: 86 Year
  Sex: Male

DRUGS (13)
  1. XGEVA [Suspect]
     Indication: METASTASES TO BONE
     Dosage: 120 MG, Q4WK
     Route: 058
     Dates: start: 20110318, end: 20130226
  2. PREDNISOLONE [Concomitant]
     Dosage: 5 MG, BID
     Dates: start: 20130109
  3. ASS [Concomitant]
     Dosage: 100 UNK, QD
  4. PANTOZOL                           /01263204/ [Concomitant]
     Dosage: 20 UNK, BID
  5. TORASEMID [Concomitant]
     Dosage: 5 UNK, QD
  6. BISOPROLOL [Concomitant]
     Dosage: 5 UNK, UNK
  7. ISMN [Concomitant]
     Dosage: 20 UNK, BID
  8. VENLAFAXIN [Concomitant]
     Dosage: 75 UNK, QD
  9. LYRICA [Concomitant]
     Dosage: 25 UNK, BID
  10. ZYTIGA [Concomitant]
     Dosage: 250 UNK, QID
  11. TRAMAL [Concomitant]
  12. VITARENAL [Concomitant]
     Dosage: UNK UNK, QD
  13. HEPARIN                            /00027704/ [Concomitant]

REACTIONS (2)
  - Osteonecrosis of jaw [Not Recovered/Not Resolved]
  - Dental caries [Unknown]
